FAERS Safety Report 16211060 (Version 1)
Quarter: 2019Q2

REPORT INFORMATION
  Report Type: Spontaneous
  Country: US (occurrence: US)
  Receive Date: 20190417
  Receipt Date: 20190417
  Transmission Date: 20190711
  Serious: Yes (Other)
  Sender: FDA-Public Use
  Company Number: None

PATIENT
  Age: 45 Year
  Sex: Male
  Weight: 112.5 kg

DRUGS (2)
  1. PAROXOTINE [Concomitant]
  2. LEXISCAN [Suspect]
     Active Substance: REGADENOSON
     Indication: CARDIAC STRESS TEST
     Route: 042
     Dates: start: 20190417, end: 20190417

REACTIONS (11)
  - Asthenia [None]
  - Tremor [None]
  - Vision blurred [None]
  - Syncope [None]
  - Dizziness [None]
  - Loss of consciousness [None]
  - Contrast media reaction [None]
  - Malaise [None]
  - Headache [None]
  - Nausea [None]
  - Feeling cold [None]

NARRATIVE: CASE EVENT DATE: 20190417
